FAERS Safety Report 20762905 (Version 1)
Quarter: 2022Q2

REPORT INFORMATION
  Report Type: Spontaneous
  Country: CA (occurrence: None)
  Receive Date: 20220428
  Receipt Date: 20220428
  Transmission Date: 20220721
  Serious: Yes (Other)
  Sender: FDA-Public Use
  Company Number: CA-ROCHE-3083247

PATIENT
  Age: 71 Year
  Sex: Male

DRUGS (2)
  1. RITUXIMAB [Suspect]
     Active Substance: RITUXIMAB
     Indication: Cholangitis
     Route: 041
  2. RITUXIMAB [Suspect]
     Active Substance: RITUXIMAB
     Indication: Autoimmune pancreatitis

REACTIONS (6)
  - Bacterial translocation [Unknown]
  - Blood glucose increased [Unknown]
  - Intentional product use issue [Unknown]
  - Off label use [Unknown]
  - Osteonecrosis [Unknown]
  - Septic shock [Unknown]
